FAERS Safety Report 18533254 (Version 1)
Quarter: 2020Q4

REPORT INFORMATION
  Report Type: Spontaneous
  Country: US (occurrence: US)
  Receive Date: 20201120
  Receipt Date: 20201120
  Transmission Date: 20210114
  Serious: No
  Sender: FDA-Public Use
  Company Number: None

PATIENT
  Age: 68 Year
  Sex: Female

DRUGS (6)
  1. FUROSEMIDE. [Concomitant]
     Active Substance: FUROSEMIDE
  2. CISATRACURIUM. [Concomitant]
     Active Substance: CISATRACURIUM
  3. MIDAZOLAM CONTINUOUS IV [Concomitant]
  4. REMDESIVIR. [Suspect]
     Active Substance: REMDESIVIR
     Indication: COVID-19
     Dates: start: 20201010, end: 20201014
  5. FENTANYL CONTINUOUS IV [Concomitant]
  6. EPOPROSTENOL NEB [Concomitant]

REACTIONS (3)
  - Bradycardia [None]
  - Hypoxia [None]
  - Sinus tachycardia [None]
